FAERS Safety Report 6461699-1 (Version None)
Quarter: 2009Q4

REPORT INFORMATION
  Report Type: 
  Country: None (occurrence: None)
  Receive Date: 20091130
  Receipt Date: 20091124
  Transmission Date: 20100525
  Serious: Yes (Death, Other)
  Sender: FDA-Public Use
  Company Number: FR-BRISTOL-MYERS SQUIBB COMPANY-14871339

PATIENT
  Age: 3 Decade
  Sex: Male

DRUGS (3)
  1. ABILIFY [Suspect]
     Indication: SCHIZOPHRENIA
     Dates: start: 20090901
  2. RISPERDAL CONSTA [Suspect]
     Dosage: ALSO 50 MG DAILY
     Route: 030
  3. LOXAPAC [Suspect]

REACTIONS (3)
  - COMPLETED SUICIDE [None]
  - DELIRIUM [None]
  - HALLUCINATION [None]
